FAERS Safety Report 9373702 (Version 2)
Quarter: 2013Q3

REPORT INFORMATION
  Report Type: Spontaneous
  Country: US (occurrence: US)
  Receive Date: 20130627
  Receipt Date: 20130702
  Transmission Date: 20140515
  Serious: Yes (Hospitalization, Other)
  Sender: FDA-Public Use
  Company Number: US-BAXTER-2013BAX023755

PATIENT
  Age: 32 Year
  Sex: Male

DRUGS (4)
  1. DIANEAL LOW CALCIUM [Suspect]
     Indication: PERITONEAL DIALYSIS
     Route: 033
     Dates: start: 2009
  2. DIANEAL LOW CALCIUM [Suspect]
     Indication: PERITONEAL DIALYSIS
     Route: 033
     Dates: start: 2009
  3. IBUPROFEN [Suspect]
     Indication: ARTHRALGIA
     Route: 065
  4. MOTRIN [Suspect]
     Indication: ARTHRALGIA
     Route: 065

REACTIONS (2)
  - Haemorrhage [Recovering/Resolving]
  - Chondrocalcinosis [Recovering/Resolving]
